FAERS Safety Report 7392190-6 (Version None)
Quarter: 2011Q2

REPORT INFORMATION
  Report Type: 
  Country: None (occurrence: None)
  Receive Date: 20110404
  Receipt Date: 20110328
  Transmission Date: 20111010
  Serious: Yes (Hospitalization)
  Sender: FDA-Public Use
  Company Number: B0709424A

PATIENT

DRUGS (1)
  1. REQUIP [Suspect]
     Indication: PARKINSON'S DISEASE
     Route: 048
     Dates: start: 19991014, end: 20080801

REACTIONS (5)
  - INSOMNIA [None]
  - AGGRESSION [None]
  - DISINHIBITION [None]
  - PSYCHOMOTOR HYPERACTIVITY [None]
  - OBSESSIVE-COMPULSIVE DISORDER [None]
